FAERS Safety Report 6998740-3 (Version None)
Quarter: 2010Q3

REPORT INFORMATION
  Report Type: 
  Country: None (occurrence: None)
  Receive Date: 20100920
  Receipt Date: 20100716
  Transmission Date: 20110219
  Serious: No
  Sender: FDA-Public Use
  Company Number: US-ASTRAZENECA-2010SE33375

PATIENT
  Age: 65 Year
  Sex: Female
  Weight: 73.9 kg

DRUGS (11)
  1. SEROQUEL [Suspect]
     Indication: SCHIZOPHRENIA, PARANOID TYPE
     Route: 048
  2. SEROQUEL [Suspect]
     Route: 048
     Dates: start: 20100604
  3. LISINOPRIL [Concomitant]
  4. VANLAFAXINE [Concomitant]
  5. LEVOTHYROXINE [Concomitant]
  6. TRIHYXYPHENICYL [Concomitant]
     Indication: ADVERSE DRUG REACTION
  7. CALCIUM [Concomitant]
  8. EVISTA [Concomitant]
  9. SIMVASTATIN [Concomitant]
  10. LORAZEPAM [Concomitant]
     Indication: INSOMNIA
  11. LORAZEPAM [Concomitant]
     Indication: ANXIETY

REACTIONS (4)
  - ABNORMAL BEHAVIOUR [None]
  - LETHARGY [None]
  - MENTAL STATUS CHANGES [None]
  - PAROSMIA [None]
